FAERS Safety Report 6741805-1 (Version None)
Quarter: 2010Q2

REPORT INFORMATION
  Report Type: 
  Country: None (occurrence: None)
  Receive Date: 20100526
  Receipt Date: 20100520
  Transmission Date: 20101027
  Serious: Yes (Other)
  Sender: FDA-Public Use
  Company Number: B0657064A

PATIENT
  Sex: Female
  Weight: 78 kg

DRUGS (4)
  1. ALLI [Suspect]
     Dosage: 60MG TWICE PER DAY
     Route: 048
     Dates: start: 20100120, end: 20100320
  2. DAFLON 500 [Concomitant]
     Indication: VENOUS INSUFFICIENCY
     Dosage: 500MG TWICE PER DAY
     Route: 048
  3. MODURETIC 5-50 [Concomitant]
     Route: 048
  4. SIMVASTATIN [Concomitant]
     Dosage: 20MG PER DAY
     Route: 048

REACTIONS (1)
  - EYE HAEMORRHAGE [None]
